FAERS Safety Report 5907219-9 (Version None)
Quarter: 2008Q4

REPORT INFORMATION
  Report Type: 
  Country: None (occurrence: None)
  Receive Date: 20081003
  Receipt Date: 20080923
  Transmission Date: 20090506
  Serious: Yes (Other)
  Sender: FDA-Public Use
  Company Number: US-ROCHE-268287

PATIENT
  Age: 69 Year
  Sex: Female

DRUGS (7)
  1. VALIUM [Suspect]
     Indication: ANXIETY DISORDER
     Route: 048
     Dates: start: 19730101
  2. VALIUM [Suspect]
     Route: 048
  3. VALIUM [Suspect]
     Route: 048
  4. DIAZEPAM [Suspect]
     Indication: DRUG USE FOR UNKNOWN INDICATION
     Route: 065
  5. MORPHINE PUMP [Concomitant]
  6. 1 CONCOMITANT DRUG [Concomitant]
     Dosage: DRUG REPORTED AS HIGH BLOOD PRESSURE MEDICATION
  7. 1 CONCOMITANT DRUG [Concomitant]
     Dosage: DRUG REPORTED AS BRONCHITIS MEDICATION.

REACTIONS (5)
  - CHRONIC OBSTRUCTIVE PULMONARY DISEASE [None]
  - EMPHYSEMA [None]
  - GASTROINTESTINAL CARCINOMA [None]
  - NO THERAPEUTIC RESPONSE [None]
  - WITHDRAWAL SYNDROME [None]
